FAERS Safety Report 17866260 (Version 1)
Quarter: 2020Q2

REPORT INFORMATION
  Report Type: Spontaneous
  Country: DE (occurrence: DE)
  Receive Date: 20200605
  Receipt Date: 20200605
  Transmission Date: 20200714
  Serious: Yes (Life-Threatening, Disabling, Other)
  Sender: FDA-Public Use
  Company Number: DE-TEVA-2020-DE-1244556

PATIENT
  Age: 78 Year
  Sex: Female
  Weight: 100 kg

DRUGS (10)
  1. BISOPROLOL 5 MG [Concomitant]
     Active Substance: BISOPROLOL
  2. KARVEA 150 MG [Concomitant]
  3. MOXONIDIN 0,2 MG [Concomitant]
     Active Substance: MOXONIDINE
  4. IBUPROFEN 400 MG [Concomitant]
     Active Substance: IBUPROFEN
  5. ALLOPURINOL 300 MG [Concomitant]
     Active Substance: ALLOPURINOL
  6. ISDN 20 MG [Concomitant]
  7. LEVOFLOXACIN. [Suspect]
     Active Substance: LEVOFLOXACIN
     Indication: URINARY TRACT INFECTION
     Dosage: 250 MG
     Route: 042
     Dates: start: 20200522, end: 20200524
  8. TOREM 10 MG [Concomitant]
     Active Substance: TORSEMIDE
  9. ASPIRIN. [Concomitant]
     Active Substance: ASPIRIN
  10. PANTOZOL 40 MG [Concomitant]

REACTIONS (2)
  - Long QT syndrome [Not Recovered/Not Resolved]
  - Ventricular fibrillation [Not Recovered/Not Resolved]

NARRATIVE: CASE EVENT DATE: 20200525
